FAERS Safety Report 8740590 (Version 6)
Quarter: 2014Q3

REPORT INFORMATION
  Report Type: Spontaneous
  Country: US (occurrence: US)
  Receive Date: 20120823
  Receipt Date: 20140812
  Transmission Date: 20150326
  Serious: Yes (Hospitalization, Other)
  Sender: FDA-Public Use
  Company Number: US-009507513-2011SP047492

PATIENT
  Sex: Female
  Weight: 82.99 kg

DRUGS (2)
  1. NUVARING [Suspect]
     Active Substance: ETHINYL ESTRADIOL\ETONOGESTREL
     Indication: MENSTRUATION IRREGULAR
  2. NUVARING [Suspect]
     Active Substance: ETHINYL ESTRADIOL\ETONOGESTREL
     Indication: CONTRACEPTION
     Dosage: UNK
     Dates: start: 200710, end: 200910

REACTIONS (9)
  - Nasal disorder [Unknown]
  - Hypothyroidism [Unknown]
  - Anxiety [Unknown]
  - Ear disorder [Unknown]
  - Tendon operation [Unknown]
  - Deep vein thrombosis [Unknown]
  - Depression [Unknown]
  - Pharyngeal disorder [Unknown]
  - Pain in extremity [Unknown]

NARRATIVE: CASE EVENT DATE: 200712
